FAERS Safety Report 6017852-4 (Version None)
Quarter: 2008Q4

REPORT INFORMATION
  Report Type: 
  Country: None (occurrence: None)
  Receive Date: 20081223
  Receipt Date: 20081219
  Transmission Date: 20090506
  Serious: Yes (Hospitalization)
  Sender: FDA-Public Use
  Company Number: FR-MERCK-0812FRA00077

PATIENT
  Age: 71 Year
  Sex: Male

DRUGS (3)
  1. PRIMAXIN [Suspect]
     Indication: ENTEROBACTER SEPSIS
     Route: 041
     Dates: start: 20080728
  2. VANCOMYCIN [Suspect]
     Indication: STAPHYLOCOCCAL INFECTION
     Route: 041
     Dates: start: 20080721
  3. GENTAMICIN [Suspect]
     Indication: ENTEROBACTER SEPSIS
     Route: 042
     Dates: start: 20080728, end: 20080805

REACTIONS (1)
  - DRUG RASH WITH EOSINOPHILIA AND SYSTEMIC SYMPTOMS [None]
